FAERS Safety Report 6530836-2 (Version None)
Quarter: 2010Q1

REPORT INFORMATION
  Report Type: 
  Country: None (occurrence: None)
  Receive Date: 20100108
  Receipt Date: 20090327
  Transmission Date: 20100710
  Serious: No
  Sender: FDA-Public Use
  Company Number: A0775902A

PATIENT
  Age: 78 Year
  Sex: Female

DRUGS (8)
  1. LOVAZA [Suspect]
     Route: 048
     Dates: start: 20090101
  2. ROLAIDS [Concomitant]
  3. CLONIDINE [Concomitant]
  4. HYDROCHLOROTHIAZIDE [Concomitant]
  5. TOPROL-XL [Concomitant]
  6. VITAMIN-MINERAL COMPOUND TAB [Concomitant]
  7. MICARDIS [Concomitant]
  8. GABAPENTIN [Concomitant]

REACTIONS (2)
  - DYSGEUSIA [None]
  - ERUCTATION [None]
